FAERS Safety Report 11885925 (Version 2)
Quarter: 2016Q1

REPORT INFORMATION
  Report Type: Report from Study
  Country: US (occurrence: US)
  Receive Date: 20160104
  Receipt Date: 20160217
  Transmission Date: 20160526
  Serious: Yes (Hospitalization)
  Sender: FDA-Public Use
  Company Number: US-ABBVIE-15P-163-1505065-00

PATIENT
  Age: 51 Year
  Sex: Female

DRUGS (1)
  1. HUMIRA [Suspect]
     Active Substance: ADALIMUMAB
     Indication: RHEUMATOID ARTHRITIS
     Route: 058

REACTIONS (6)
  - Ligament sprain [Unknown]
  - Tibia fracture [Not Recovered/Not Resolved]
  - Drug dose omission [Unknown]
  - Fall [Recovered/Resolved]
  - Foot fracture [Not Recovered/Not Resolved]
  - Fibula fracture [Not Recovered/Not Resolved]

NARRATIVE: CASE EVENT DATE: 20151113
